FAERS Safety Report 5299667-8 (Version None)
Quarter: 2007Q2

REPORT INFORMATION
  Report Type: 
  Country: None (occurrence: None)
  Receive Date: 20070410
  Receipt Date: 20070401
  Transmission Date: 20071010
  Serious: Yes (Hospitalization, Other)
  Sender: FDA-Public Use
  Company Number: 163-20785-06060602

PATIENT
  Age: 44 Year
  Sex: Male
  Weight: 110.9 kg

DRUGS (8)
  1. THALOMID [Suspect]
     Indication: SARCOMA
     Dosage: 200 MG, QD ON DAYS 7-21, 28-42, ORAL
     Route: 048
     Dates: start: 20060207, end: 20060516
  2. MESNA [Suspect]
     Indication: SARCOMA
     Dosage: 2500 MG/M2 DAY CIV X 4 DAYS,  (DAYS 1-4, 22-25, 43-46), INTRAVENOUS
     Route: 042
     Dates: start: 20060207
  3. DOXORUBICIN HCL [Suspect]
     Indication: SARCOMA
     Dosage: 20 MG/M2 DAY CIV X 3 DAYS, (DAYS 1-3, 22-24, 43-45), INTRAVENOUS
     Route: 042
     Dates: start: 20060207
  4. IFOSFAMIDE [Suspect]
     Indication: SARCOMA
     Dosage: 2500 MG/M2/DAY CIV X3 DAYS, (DAYS 1-3, 22-24, 43-45), INTRAVENOUS
     Route: 042
     Dates: start: 20060207
  5. DTIC-DOME [Suspect]
     Indication: SARCOMA
     Dosage: 225 MG/M2/DAY CIV X3 DAYS, (DAYS 1-3, 22-24, 43-45), INTRAVENOUS
     Route: 042
     Dates: start: 20060207
  6. G-CSF (GRANULOCYTE COLONY STIMULATING FACTOR) [Suspect]
     Indication: SARCOMA
     Dosage: 5 MCG/KG/DAY QD STARTING DAY 5 AND CONTINUING UNTIL ANC}10,000, SUBCUTANEOUS
     Route: 058
     Dates: start: 20060207
  7. OXYCODONE (OXYCODONE) (TABLETS) [Concomitant]
  8. LOVENOX [Concomitant]

REACTIONS (32)
  - ALOPECIA [None]
  - ANOREXIA [None]
  - ANXIETY [None]
  - BRONCHOSPASM [None]
  - CONSTIPATION [None]
  - COUGH [None]
  - DEHYDRATION [None]
  - DEPRESSION [None]
  - DIZZINESS [None]
  - ELECTROCARDIOGRAM QT CORRECTED INTERVAL PROLONGED [None]
  - FATIGUE [None]
  - HYPERBILIRUBINAEMIA [None]
  - HYPERGLYCAEMIA [None]
  - HYPOALBUMINAEMIA [None]
  - HYPOCALCAEMIA [None]
  - HYPOKALAEMIA [None]
  - HYPOMAGNESAEMIA [None]
  - HYPOTENSION [None]
  - LYMPHOPENIA [None]
  - MUSCULAR WEAKNESS [None]
  - MUSCULOSKELETAL CHEST PAIN [None]
  - NAUSEA [None]
  - PAIN IN EXTREMITY [None]
  - PERIPHERAL SENSORY NEUROPATHY [None]
  - PYREXIA [None]
  - RADIATION SKIN INJURY [None]
  - SINUS BRADYCARDIA [None]
  - SKIN HYPERPIGMENTATION [None]
  - SYNCOPE [None]
  - VENOUS THROMBOSIS [None]
  - VOMITING [None]
  - WEIGHT DECREASED [None]
